FAERS Safety Report 8688368 (Version 2)
Quarter: 2013Q4

REPORT INFORMATION
  Report Type: Spontaneous
  Country: US (occurrence: US)
  Receive Date: 20120727
  Receipt Date: 20131031
  Transmission Date: 20140711
  Serious: No
  Sender: FDA-Public Use
  Company Number: US-009507513-2012SP024101

PATIENT
  Sex: Female
  Weight: 52.16 kg

DRUGS (6)
  1. CLARITIN [Suspect]
     Indication: HYPERSENSITIVITY
     Dosage: 10 MG, QAM
     Route: 048
  2. CLARITIN [Suspect]
     Indication: SEASONAL ALLERGY
  3. CLARITIN [Suspect]
     Indication: MEDICAL OBSERVATION
  4. VITAMINS (UNSPECIFIED) [Concomitant]
     Indication: PRODUCT USED FOR UNKNOWN INDICATION
     Dosage: UNK UNK, UNKNOWN
  5. OMEGA-3 MARINE TRIGLYCERIDES [Concomitant]
     Indication: PRODUCT USED FOR UNKNOWN INDICATION
     Dosage: UNK UNK, UNKNOWN
  6. TRI LEGEST FE [Concomitant]
     Indication: CONTRACEPTION
     Dosage: UNK UNK, UNKNOWN

REACTIONS (1)
  - Dizziness [Recovered/Resolved]
